FAERS Safety Report 20213189 (Version 9)
Quarter: 2022Q1

REPORT INFORMATION
  Report Type: Report from Study
  Country: CA (occurrence: CA)
  Receive Date: 20211221
  Receipt Date: 20220309
  Transmission Date: 20220424
  Serious: Yes (Hospitalization, Other)
  Sender: FDA-Public Use
  Company Number: CA-BoehringerIngelheim-2021-BI-135996

PATIENT
  Age: 69 Year
  Sex: Male

DRUGS (2)
  1. OFEV [Suspect]
     Active Substance: NINTEDANIB
     Indication: Idiopathic pulmonary fibrosis
     Route: 048
     Dates: start: 20211029, end: 20220119
  2. OFEV [Suspect]
     Active Substance: NINTEDANIB
     Route: 048
     Dates: start: 2021

REACTIONS (25)
  - Myocardial infarction [Unknown]
  - Myocardial infarction [Unknown]
  - Oral infection [Recovering/Resolving]
  - Pneumonia [Recovering/Resolving]
  - Cardiac disorder [Unknown]
  - Sinusitis [Recovering/Resolving]
  - Constipation [Recovering/Resolving]
  - Epistaxis [Recovering/Resolving]
  - Epistaxis [Recovered/Resolved]
  - Asthenia [Not Recovered/Not Resolved]
  - Decreased appetite [Not Recovered/Not Resolved]
  - Neuromuscular pain [Not Recovered/Not Resolved]
  - Constipation [Recovered/Resolved]
  - Neck pain [Not Recovered/Not Resolved]
  - Oxygen saturation decreased [Not Recovered/Not Resolved]
  - Dyspnoea [Not Recovered/Not Resolved]
  - Epistaxis [Recovered/Resolved with Sequelae]
  - Respiratory tract infection [Recovering/Resolving]
  - Oxygen saturation decreased [Not Recovered/Not Resolved]
  - Secretion discharge [Not Recovered/Not Resolved]
  - Myalgia [Not Recovered/Not Resolved]
  - Diarrhoea [Not Recovered/Not Resolved]
  - Bowel movement irregularity [Not Recovered/Not Resolved]
  - Fatigue [Not Recovered/Not Resolved]
  - Arthralgia [Not Recovered/Not Resolved]

NARRATIVE: CASE EVENT DATE: 20210101
